FAERS Safety Report 6885001-6 (Version None)
Quarter: 2010Q3

REPORT INFORMATION
  Report Type: 
  Country: None (occurrence: None)
  Receive Date: 20100729
  Receipt Date: 20071015
  Transmission Date: 20110219
  Serious: Yes (Hospitalization)
  Sender: FDA-Public Use
  Company Number: US-PFIZER INC-2007086174

PATIENT
  Sex: Female
  Weight: 97.5 kg

DRUGS (2)
  1. CELEBREX [Suspect]
     Indication: CARPAL TUNNEL SYNDROME
     Dates: start: 19990101, end: 20040101
  2. CELEBREX [Suspect]
     Indication: ARTHRALGIA

REACTIONS (2)
  - CEREBROVASCULAR ACCIDENT [None]
  - MYOCARDIAL INFARCTION [None]
